FAERS Safety Report 4330349-2 (Version None)
Quarter: 2004Q1

REPORT INFORMATION
  Report Type: 
  Country: None (occurrence: None)
  Receive Date: 20040329
  Receipt Date: 20040316
  Transmission Date: 20041129
  Serious: Yes (Hospitalization)
  Sender: FDA-Public Use
  Company Number: 2004018700

PATIENT
  Age: 36 Year
  Sex: Female

DRUGS (4)
  1. GABAPENTIN [Suspect]
     Indication: NEUROPATHIC PAIN
     Dosage: 300 MG DAILY, ORAL
     Route: 048
     Dates: start: 20031101
  2. AMITRIPTYLINE HCL [Concomitant]
  3. BROMAZEPAM (BROMAZEPAM) [Concomitant]
  4. METHADONE HCL [Concomitant]

REACTIONS (2)
  - ABASIA [None]
  - TREMOR [None]
